FAERS Safety Report 4999481-4 (Version None)
Quarter: 2006Q2

REPORT INFORMATION
  Report Type: 
  Country: None (occurrence: None)
  Receive Date: 20060509
  Receipt Date: 20060509
  Transmission Date: 20061013
  Serious: Yes (Hospitalization)
  Sender: FDA-Public Use
  Company Number: None

PATIENT
  Age: 55 Year
  Sex: Female

DRUGS (11)
  1. TACROLIMUS [Suspect]
     Indication: PROPHYLAXIS AGAINST TRANSPLANT REJECTION
     Dosage: 4 MG PO BID
     Route: 048
  2. SULFAMETHOXAZOLE + TRIMETHOPRIM [Concomitant]
  3. DOCUSATE [Concomitant]
  4. INSULIN GLARGINE [Concomitant]
  5. RANITIDINE [Concomitant]
  6. AMLODIPINE [Concomitant]
  7. PREDNISONE [Concomitant]
  8. GANCICLOVIR [Concomitant]
  9. MAGNESIUM OXIDE [Concomitant]
  10. NYSTATIN [Concomitant]
  11. MYCOPHENOLATE [Concomitant]

REACTIONS (3)
  - DRUG TOXICITY [None]
  - HYPOMAGNESAEMIA [None]
  - TREMOR [None]
